FAERS Safety Report 8521349-7 (Version None)
Quarter: 2012Q3

REPORT INFORMATION
  Report Type: 
  Country: None (occurrence: None)
  Receive Date: 20120719
  Receipt Date: 20120710
  Transmission Date: 20120928
  Serious: Yes (Other)
  Sender: FDA-Public Use
  Company Number: HR-ASTRAZENECA-2012SE47430

PATIENT
  Age: 58 Year
  Sex: Female

DRUGS (3)
  1. SEROQUEL [Suspect]
     Indication: SCHIZOPHRENIA
     Route: 048
     Dates: start: 20120605, end: 20120614
  2. DIAZEPAM [Concomitant]
     Route: 048
  3. LORSILAN [Concomitant]
     Indication: SCHIZOPHRENIA
     Route: 048
     Dates: end: 20120614

REACTIONS (4)
  - BLOOD PRESSURE DIFFERENCE OF EXTREMITIES [None]
  - BLOOD PRESSURE DECREASED [None]
  - ELECTROCARDIOGRAM QT PROLONGED [None]
  - BRADYCARDIA [None]
